FAERS Safety Report 6235937-4 (Version None)
Quarter: 2009Q2

REPORT INFORMATION
  Report Type: 
  Country: None (occurrence: None)
  Receive Date: 20090619
  Receipt Date: 20090608
  Transmission Date: 20091009
  Serious: Yes (Hospitalization)
  Sender: FDA-Public Use
  Company Number: PHHY2009FR14718

PATIENT
  Sex: Female

DRUGS (6)
  1. EXELON [Suspect]
     Dosage: 4.6 MG/24HRS
     Route: 062
     Dates: start: 20090301, end: 20090415
  2. SINEMET [Suspect]
     Dosage: 1 DF, TID
     Route: 048
     Dates: end: 20090415
  3. CYMBALTA [Suspect]
     Dosage: 60 MG, QD
     Route: 048
     Dates: start: 20090101, end: 20090421
  4. SERESTA [Suspect]
     Dosage: UNK
     Dates: end: 20090416
  5. SERESTA [Suspect]
     Dosage: 10 MG/DAY
  6. IMOVANE [Concomitant]

REACTIONS (10)
  - ABNORMAL BEHAVIOUR [None]
  - CONDITION AGGRAVATED [None]
  - DISORIENTATION [None]
  - DIZZINESS [None]
  - DYSKINESIA [None]
  - FALL [None]
  - GAIT DISTURBANCE [None]
  - HEAD INJURY [None]
  - HYPOTONIA [None]
  - PYRAMIDAL TRACT SYNDROME [None]
